FAERS Safety Report 17362256 (Version 1)
Quarter: 2020Q1

REPORT INFORMATION
  Report Type: Spontaneous
  Country: CH (occurrence: CH)
  Receive Date: 20200203
  Receipt Date: 20200203
  Transmission Date: 20200409
  Serious: Yes (Hospitalization)
  Sender: FDA-Public Use
  Company Number: CH-ASTRAZENECA-2020SE14145

PATIENT
  Age: 758 Month
  Sex: Female

DRUGS (13)
  1. FORXIGA [Suspect]
     Active Substance: DAPAGLIFLOZIN
     Dosage: 20.0MG UNKNOWN
     Route: 048
     Dates: start: 201912, end: 20200103
  2. CLEXANE [Concomitant]
     Active Substance: ENOXAPARIN SODIUM
  3. DAFALGAN [Concomitant]
     Active Substance: ACETAMINOPHEN
     Dosage: AS NECESSARY
  4. NOVORAPID [Suspect]
     Active Substance: INSULIN ASPART
     Route: 065
     Dates: start: 20200107, end: 202001
  5. GLUCOPHAGE [Concomitant]
     Active Substance: METFORMIN HYDROCHLORIDE
  6. FORXIGA [Suspect]
     Active Substance: DAPAGLIFLOZIN
     Dosage: 5.0MG UNKNOWN
     Route: 048
     Dates: start: 20190705, end: 201910
  7. DERMOVATE [Concomitant]
     Active Substance: CLOBETASOL
  8. DEXERYL [Concomitant]
  9. FEXOFENADINE [Concomitant]
     Active Substance: FEXOFENADINE HYDROCHLORIDE
  10. CO-AMOXI [Concomitant]
     Active Substance: AMOXICILLIN\CLAVULANATE POTASSIUM
  11. DIAMICRON [Concomitant]
     Active Substance: GLICLAZIDE
  12. BETNOVATE [Concomitant]
     Active Substance: BETAMETHASONE
  13. FORXIGA [Suspect]
     Active Substance: DAPAGLIFLOZIN
     Dosage: 10.0MG UNKNOWN
     Route: 048
     Dates: start: 201910, end: 201912

REACTIONS (3)
  - Rebound effect [Not Recovered/Not Resolved]
  - Dermo-hypodermitis [Not Recovered/Not Resolved]
  - Drug eruption [Recovered/Resolved]

NARRATIVE: CASE EVENT DATE: 201910
